FAERS Safety Report 14332142 (Version 3)
Quarter: 2018Q4

REPORT INFORMATION
  Report Type: Spontaneous
  Country: ES (occurrence: ES)
  Receive Date: 20171228
  Receipt Date: 20181126
  Transmission Date: 20190204
  Serious: Yes (Life-Threatening, Other)
  Sender: FDA-Public Use
  Company Number: ES-SA-2017SA266260

PATIENT
  Age: 45 Year
  Sex: Male
  Weight: 67.1 kg

DRUGS (8)
  1. SODIUM BICARBONATE. [Concomitant]
     Active Substance: SODIUM BICARBONATE
     Dosage: 2 G,QD
     Route: 048
     Dates: start: 20140730
  2. OMACOR [Concomitant]
     Active Substance: OMEGA-3-ACID ETHYL ESTERS
     Indication: LIPIDS
     Dosage: 1000 UG,BID
     Route: 048
     Dates: start: 20161103
  3. PREDNISONE. [Interacting]
     Active Substance: PREDNISONE
     Indication: RENAL TRANSPLANT
     Dosage: 5 MG,QD
     Route: 048
     Dates: start: 20150729
  4. PROFER [FERRIMANNITOL OVALBUMIN] [Concomitant]
     Indication: ANAEMIA
     Dosage: 1 DF,QD
     Route: 048
     Dates: start: 20170824
  5. PRALUENT [Suspect]
     Active Substance: ALIROCUMAB
     Indication: TYPE IIA HYPERLIPIDAEMIA
     Dosage: 75 MG,UNK
     Route: 058
     Dates: start: 20170929
  6. CERTICAN [Interacting]
     Active Substance: EVEROLIMUS
     Indication: RENAL TRANSPLANT
     Dosage: 1 DF,BID
     Route: 048
     Dates: start: 20170401
  7. ADVAGRAF [Interacting]
     Active Substance: TACROLIMUS
     Indication: TRANSPLANT
     Dosage: 1 MG,QD
     Route: 048
     Dates: start: 20151016
  8. LOBIVON [Concomitant]
     Active Substance: NEBIVOLOL HYDROCHLORIDE
     Indication: HYPERTENSION
     Dosage: 1 DF,QD
     Route: 048
     Dates: start: 20151215

REACTIONS (1)
  - Pneumonia [Recovered/Resolved]

NARRATIVE: CASE EVENT DATE: 20171017
